FAERS Safety Report 11025607 (Version 1)
Quarter: 2015Q2

REPORT INFORMATION
  Report Type: Spontaneous
  Country: DE (occurrence: DE)
  Receive Date: 20150414
  Receipt Date: 20150414
  Transmission Date: 20150821
  Serious: Yes (Other)
  Sender: FDA-Public Use
  Company Number: DE-GLAXOSMITHKLINE-DE2015GSK048170

PATIENT
  Sex: Male

DRUGS (2)
  1. CEFUROXIM-RATIOPHARM [Suspect]
     Active Substance: CEFUROXIME
     Indication: OSTEOMYELITIS
     Route: 048
  2. METRONIDAZOL [Suspect]
     Active Substance: METRONIDAZOLE
     Indication: OSTEOMYELITIS

REACTIONS (1)
  - Pancreatitis [Unknown]
